FAERS Safety Report 15821399 (Version 1)
Quarter: 2019Q1

REPORT INFORMATION
  Report Type: Spontaneous
  Country: GB (occurrence: GB)
  Receive Date: 20190114
  Receipt Date: 20190114
  Transmission Date: 20190417
  Serious: Yes (Death, Other)
  Sender: FDA-Public Use
  Company Number: GB-MYLANLABS-2019M1001823

PATIENT

DRUGS (3)
  1. EPIRUBICIN [Suspect]
     Active Substance: EPIRUBICIN
     Indication: OESOPHAGEAL ADENOCARCINOMA
     Dosage: 50 MG/M2, ON DAY ONE OF THREE 21 DAY CYCLE PRE-OPERATIVELY
     Route: 040
  2. CAPECITABINE. [Suspect]
     Active Substance: CAPECITABINE
     Indication: OESOPHAGEAL ADENOCARCINOMA
     Dosage: 625 MG/M2, BID OF THREE 21 DAY CYCLE PRE-OPERATIVELY
     Route: 065
  3. CISPLATIN. [Suspect]
     Active Substance: CISPLATIN
     Indication: OESOPHAGEAL ADENOCARCINOMA
     Dosage: 60 MG/M2, WITH HYDRATION ON DAY ONE OF THREE 21 DAY CYCLE PRE-OPERATIVELY
     Route: 042

REACTIONS (1)
  - Mesenteric artery thrombosis [Fatal]
